FAERS Safety Report 20912185 (Version 1)
Quarter: 2022Q2

REPORT INFORMATION
  Report Type: Spontaneous
  Country: JP (occurrence: JP)
  Receive Date: 20220603
  Receipt Date: 20220603
  Transmission Date: 20220721
  Serious: Yes (Death, Other)
  Sender: FDA-Public Use
  Company Number: JP-JAZZ-2022-JP-018469

PATIENT
  Age: 71 Year
  Sex: Male
  Weight: 52.5 kg

DRUGS (3)
  1. DEFITELIO [Suspect]
     Active Substance: DEFIBROTIDE SODIUM
     Indication: Venoocclusive liver disease
     Dosage: 25 MILLIGRAM/KILOGRAM, QD
     Route: 042
     Dates: start: 20220414, end: 20220502
  2. NONTHRON [Concomitant]
     Indication: Product used for unknown indication
     Dosage: UNK
     Dates: start: 20220414, end: 20220414
  3. INOVAN [DOPAMINE HYDROCHLORIDE] [Concomitant]
     Indication: Hypotension
     Dosage: UNK
     Dates: start: 20220501

REACTIONS (3)
  - Hypotension [Fatal]
  - Systemic candida [Fatal]
  - Candida sepsis [Fatal]

NARRATIVE: CASE EVENT DATE: 20220430
